FAERS Safety Report 8364603-4 (Version None)
Quarter: 2012Q2

REPORT INFORMATION
  Report Type: 
  Country: None (occurrence: None)
  Receive Date: 20120516
  Receipt Date: 20120507
  Transmission Date: 20120825
  Serious: Yes (Other)
  Sender: FDA-Public Use
  Company Number: US-ASTRAZENECA-2012SE02477

PATIENT
  Age: 49 Year
  Sex: Male

DRUGS (2)
  1. NEXIUM [Suspect]
     Route: 048
  2. MYLANTA [Concomitant]

REACTIONS (18)
  - CHOLECYSTITIS [None]
  - ABDOMINAL HERNIA [None]
  - TENDON CALCIFICATION [None]
  - SLEEP APNOEA SYNDROME [None]
  - MUSCULOSKELETAL PAIN [None]
  - CHOLELITHIASIS [None]
  - GENERAL PHYSICAL HEALTH DETERIORATION [None]
  - TESTICULAR PAIN [None]
  - DYSPEPSIA [None]
  - FLANK PAIN [None]
  - ARTHROPATHY [None]
  - INTENTIONAL DRUG MISUSE [None]
  - OSTEOARTHRITIS [None]
  - POSTOPERATIVE WOUND COMPLICATION [None]
  - DYSURIA [None]
  - POLLAKIURIA [None]
  - GASTROOESOPHAGEAL REFLUX DISEASE [None]
  - HAEMATURIA [None]
